FAERS Safety Report 5794667-3 (Version None)
Quarter: 2008Q2

REPORT INFORMATION
  Report Type: 
  Country: None (occurrence: None)
  Receive Date: 20080627
  Receipt Date: 20080627
  Transmission Date: 20081010
  Serious: Yes (Life-Threatening)
  Sender: FDA-Public Use
  Company Number: None

PATIENT
  Age: 81 Year
  Sex: Male
  Weight: 100.6985 kg

DRUGS (6)
  1. VASOTEC [Suspect]
     Indication: HYPERTENSION
     Dosage: 1.25MG  Q6HRPRN  IV (DURATION: X 1 DOSE)
     Route: 042
     Dates: start: 20080608
  2. LORAZEPAM [Concomitant]
  3. MORPHINE [Concomitant]
  4. METOPROLOL SUCCINATE [Concomitant]
  5. CEFAZOLIN [Concomitant]
  6. PHENYTOIN [Concomitant]

REACTIONS (3)
  - AGITATION [None]
  - DYSKINESIA [None]
  - SWOLLEN TONGUE [None]
